FAERS Safety Report 20722946 (Version 2)
Quarter: 2022Q2

REPORT INFORMATION
  Report Type: Spontaneous
  Country: US (occurrence: US)
  Receive Date: 20220419
  Receipt Date: 20220505
  Transmission Date: 20220721
  Serious: No
  Sender: FDA-Public Use
  Company Number: US-JNJFOC-20220423918

PATIENT
  Sex: Female

DRUGS (2)
  1. TYLENOL 8 HR ARTHRITIS PAIN [Suspect]
     Active Substance: ACETAMINOPHEN
     Indication: Product used for unknown indication
     Dosage: 4 TO 5 HOURS
     Route: 065
  2. TYLENOL PM, EXTRA STRENGTH [Concomitant]
     Indication: Cerebrovascular accident
     Dosage: 2 CAPLETS EVERY NIGHT.
     Route: 065
     Dates: start: 202202

REACTIONS (2)
  - Bowel movement irregularity [Not Recovered/Not Resolved]
  - Inappropriate schedule of product administration [Unknown]

NARRATIVE: CASE EVENT DATE: 20220301
